FAERS Safety Report 15120397 (Version 16)
Quarter: 2023Q4

REPORT INFORMATION
  Report Type: Report from Study
  Country: IE (occurrence: DE)
  Receive Date: 20180709
  Receipt Date: 20231102
  Transmission Date: 20240110
  Serious: Yes (Death, Disabling, Congenital Anomaly, Other)
  Sender: FDA-Public Use
  Company Number: DE-002147023-PHHY2015DE091766

PATIENT

DRUGS (38)
  1. PANTOPRAZOLE [Suspect]
     Active Substance: PANTOPRAZOLE
     Indication: Foetal exposure during pregnancy
     Dosage: 100 MG, QD
     Route: 064
     Dates: start: 20111214, end: 20120320
  2. PANTOPRAZOLE [Suspect]
     Active Substance: PANTOPRAZOLE
     Dosage: 40 MG, QD
     Route: 064
     Dates: start: 20111214, end: 20120320
  3. PANTOPRAZOLE [Suspect]
     Active Substance: PANTOPRAZOLE
     Dosage: UNK
  4. NICOTINE [Suspect]
     Active Substance: NICOTINE
     Indication: Foetal exposure during pregnancy
     Dosage: 20 MG
     Route: 064
  5. RAMIPRIL [Suspect]
     Active Substance: RAMIPRIL
     Indication: Foetal exposure during pregnancy
     Dosage: 20 MG, QD
     Route: 064
     Dates: start: 20111214, end: 20120320
  6. SIMVASTATIN [Suspect]
     Active Substance: SIMVASTATIN
     Indication: Foetal exposure during pregnancy
     Dosage: UNK
     Route: 064
     Dates: start: 20111214, end: 20120320
  7. SIMVASTATIN [Suspect]
     Active Substance: SIMVASTATIN
     Dosage: UNK
     Route: 064
  8. ALBUTEROL [Suspect]
     Active Substance: ALBUTEROL
     Indication: Foetal exposure during pregnancy
     Dosage: UNK
     Route: 064
  9. ALBUTEROL [Suspect]
     Active Substance: ALBUTEROL
     Dosage: UNK
     Route: 064
  10. TORSEMIDE [Suspect]
     Active Substance: TORSEMIDE
     Indication: Foetal exposure during pregnancy
     Dosage: 100 MG, QD
     Route: 064
     Dates: start: 20111214, end: 20111214
  11. TORSEMIDE [Suspect]
     Active Substance: TORSEMIDE
     Dosage: UNK
     Route: 065
  12. TORSEMIDE [Suspect]
     Active Substance: TORSEMIDE
     Dosage: 100 MG, QD
     Route: 064
     Dates: start: 20111214, end: 20120320
  13. TACROLIMUS [Suspect]
     Active Substance: TACROLIMUS
     Indication: Systemic lupus erythematosus
     Dosage: 6 MG, QD
     Route: 064
     Dates: start: 20111214, end: 20120320
  14. TACROLIMUS [Suspect]
     Active Substance: TACROLIMUS
     Indication: Embolism venous
     Dosage: UNK
     Route: 065
  15. TACROLIMUS [Suspect]
     Active Substance: TACROLIMUS
     Indication: Foetal exposure during pregnancy
  16. ALISKIREN [Suspect]
     Active Substance: ALISKIREN
     Indication: Foetal exposure during pregnancy
     Dosage: 300 MG, QD
     Route: 064
     Dates: start: 20111214, end: 20120117
  17. EZETIMIBE [Suspect]
     Active Substance: EZETIMIBE
     Indication: Foetal exposure during pregnancy
     Dosage: UNK
     Route: 064
  18. EZETIMIBE [Suspect]
     Active Substance: EZETIMIBE
     Dosage: UNK
     Route: 064
  19. PREDNISOLONE [Suspect]
     Active Substance: PREDNISOLONE
     Indication: Foetal exposure during pregnancy
     Dosage: 10 MG, BID
     Route: 064
     Dates: start: 20111214, end: 20120320
  20. PREDNISOLONE [Suspect]
     Active Substance: PREDNISOLONE
     Dosage: UNK
     Route: 064
  21. HEPARIN [Suspect]
     Active Substance: HEPARIN SODIUM
     Indication: Foetal exposure during pregnancy
     Dosage: UNK
     Route: 064
  22. ENOXAPARIN SODIUM [Suspect]
     Active Substance: ENOXAPARIN SODIUM
     Indication: Product used for unknown indication
     Dosage: UNK
     Route: 064
  23. DALTEPARIN SODIUM [Suspect]
     Active Substance: DALTEPARIN SODIUM
     Indication: Product used for unknown indication
     Dosage: UNK
     Route: 064
  24. HYDROXYCHLOROQUINE SULFATE [Suspect]
     Active Substance: HYDROXYCHLOROQUINE SULFATE
     Indication: Foetal exposure during pregnancy
     Dosage: 400 MG, QD
     Route: 064
     Dates: end: 20120320
  25. HYDROXYCHLOROQUINE SULFATE [Suspect]
     Active Substance: HYDROXYCHLOROQUINE SULFATE
     Dosage: UNK
     Route: 064
  26. METAMIZOLE [Suspect]
     Active Substance: METAMIZOLE
     Indication: Foetal exposure during pregnancy
     Dosage: UNK, FROM GESTATIONAL WEEK 0-14
     Route: 064
  27. METAMIZOLE [Suspect]
     Active Substance: METAMIZOLE
     Dosage: UNK
     Route: 064
  28. METAMIZOLE [Suspect]
     Active Substance: METAMIZOLE
     Indication: Product used for unknown indication
     Dosage: UNK, TRIMESTER: FIRST; PROBABLY ONLY IN HOSPITAL IN WEEK 5
     Route: 062
  29. XARELTO [Suspect]
     Active Substance: RIVAROXABAN
     Indication: Product used for unknown indication
     Dosage: UNK
     Route: 064
  30. ASPIRIN [Suspect]
     Active Substance: ASPIRIN
     Indication: Systemic lupus erythematosus
     Dosage: UNK, QD
     Route: 064
  31. ASPIRIN [Suspect]
     Active Substance: ASPIRIN
     Indication: Embolism venous
     Dosage: UNK
     Route: 064
  32. ASPIRIN [Suspect]
     Active Substance: ASPIRIN
     Indication: Foetal exposure during pregnancy
  33. RITUXIMAB [Suspect]
     Active Substance: RITUXIMAB
     Indication: Product used for unknown indication
     Dosage: UNK (LAST TIME IN DECEMBER 2011: PRE OR PERICONCEPTIONAL)
     Route: 064
  34. CYTOTEC [Suspect]
     Active Substance: MISOPROSTOL
     Indication: Product used for unknown indication
     Dosage: UNK
     Route: 064
     Dates: start: 20120320, end: 20120320
  35. ENOXAPARIN SODIUM [Suspect]
     Active Substance: ENOXAPARIN SODIUM
     Indication: Product used for unknown indication
     Dosage: 100 MG, BID
     Route: 064
     Dates: start: 20111214, end: 20120320
  36. RIVAROXABAN [Suspect]
     Active Substance: RIVAROXABAN
     Indication: Foetal exposure during pregnancy
     Dosage: UNK
     Route: 064
  37. CYCLOPHOSPHAMIDE [Concomitant]
     Active Substance: CYCLOPHOSPHAMIDE
     Indication: Product used for unknown indication
     Dosage: UNK
     Route: 064
     Dates: start: 201104, end: 201108
  38. MIFEPRISTONE [Concomitant]
     Active Substance: MIFEPRISTONE
     Indication: Product used for unknown indication
     Dosage: UNK
     Route: 064
     Dates: start: 20120320, end: 20120320

REACTIONS (9)
  - Congenital cardiovascular anomaly [Fatal]
  - Ventricular septal defect [Fatal]
  - Truncus arteriosus persistent [Fatal]
  - Heart disease congenital [Fatal]
  - Cardiac septal defect [Fatal]
  - Abortion induced [Fatal]
  - Foetal exposure during pregnancy [Fatal]
  - Premature baby [Unknown]
  - Low birth weight baby [Unknown]
